FAERS Safety Report 5587347-0 (Version None)
Quarter: 2008Q1

REPORT INFORMATION
  Report Type: 
  Country: None (occurrence: None)
  Receive Date: 20080110
  Receipt Date: 20080102
  Transmission Date: 20080703
  Serious: Yes (Other)
  Sender: FDA-Public Use
  Company Number: US-PFIZER INC-2008000978

PATIENT
  Sex: Female
  Weight: 55.8 kg

DRUGS (8)
  1. SUTENT [Suspect]
     Indication: RENAL CELL CARCINOMA
  2. ALBUTEROL [Concomitant]
  3. CARTIA XT [Concomitant]
  4. CHONDROITIN [Concomitant]
  5. FORADIL [Concomitant]
  6. LASIX [Concomitant]
  7. LISINOPRIL AND HYDROCHLOROTHIAZIDE [Concomitant]
  8. PEPCID [Concomitant]

REACTIONS (2)
  - ANEURYSM [None]
  - LIVER FUNCTION TEST [None]
